FAERS Safety Report 20345605 (Version 1)
Quarter: 2022Q1

REPORT INFORMATION
  Report Type: Report from Study
  Country: GB (occurrence: GB)
  Receive Date: 20220118
  Receipt Date: 20220118
  Transmission Date: 20220423
  Serious: Yes (Other)
  Sender: FDA-Public Use
  Company Number: GB-NOVARTISPH-NVSC2021GB171634

PATIENT
  Age: 77 Year
  Sex: Female
  Weight: 82 kg

DRUGS (15)
  1. INCLISIRAN [Suspect]
     Active Substance: INCLISIRAN
     Indication: Type IIa hyperlipidaemia
     Dosage: 300 MG, EVERY 180 DAYS
     Route: 058
     Dates: start: 20170712
  2. LANSOPRAZOLE [Concomitant]
     Active Substance: LANSOPRAZOLE
     Indication: Dyspepsia
     Dosage: 30 MG, BID
     Route: 048
     Dates: start: 20091027
  3. CINNARIZINE [Concomitant]
     Active Substance: CINNARIZINE
     Indication: Vertigo
     Dosage: 15 MG, TWO TID
     Route: 048
     Dates: start: 20091126
  4. CINNARIZINE [Concomitant]
     Active Substance: CINNARIZINE
     Indication: Tinnitus
  5. GLYCERYLNITRAT [Concomitant]
     Indication: Chest pain
     Dosage: 1-2 PUFFS, PRN
     Route: 060
     Dates: start: 20130812
  6. EPLERENONE [Concomitant]
     Active Substance: EPLERENONE
     Indication: Cardiac failure
     Dosage: 25 MG, QD
     Route: 048
     Dates: start: 20170428
  7. RIVAROXABAN [Concomitant]
     Active Substance: RIVAROXABAN
     Indication: Cardiac failure
     Dosage: 20 MG, QD
     Route: 048
     Dates: start: 20170808
  8. ACETAMINOPHEN [Concomitant]
     Active Substance: ACETAMINOPHEN
     Indication: Osteoarthritis
     Dosage: 1 MG, PRN
     Route: 048
     Dates: start: 20050701
  9. BISOPROLOL [Concomitant]
     Active Substance: BISOPROLOL
     Indication: Myocardial infarction
     Dosage: 2.5 MG, QD
     Route: 048
     Dates: start: 20191007
  10. CANDESARTAN [Concomitant]
     Active Substance: CANDESARTAN
     Indication: Hypertension
     Dosage: 4 MG, QD
     Route: 048
     Dates: start: 20191007
  11. FLUTICASONE [Concomitant]
     Active Substance: FLUTICASONE
     Indication: Wheezing
     Dosage: 1 PUF OD
     Route: 055
     Dates: start: 20200205
  12. CHOLECALCIFEROL [Concomitant]
     Active Substance: CHOLECALCIFEROL
     Indication: Vitamin D deficiency
     Dosage: 20000 UTS ORAL TWICE/ MONTH
     Route: 065
     Dates: start: 20160428
  13. LANSOPRAZOLE [Concomitant]
     Active Substance: LANSOPRAZOLE
     Indication: Dyspepsia
     Dosage: 15 MG, PRN
     Route: 048
  14. CHLORPHENIRAMINE MALEATE [Concomitant]
     Active Substance: CHLORPHENIRAMINE MALEATE
     Indication: Hypersensitivity
     Dosage: 4 MG, PRN
     Route: 048
  15. ALBUTEROL [Concomitant]
     Active Substance: ALBUTEROL
     Indication: Lower respiratory tract infection
     Dosage: 2 PUFFS INH PRN
     Route: 055
     Dates: start: 20190129

REACTIONS (1)
  - Hepatic fibrosis [Not Recovered/Not Resolved]

NARRATIVE: CASE EVENT DATE: 20210723
